FAERS Safety Report 23072873 (Version 1)
Quarter: 2023Q4

REPORT INFORMATION
  Report Type: Spontaneous
  Country: US (occurrence: US)
  Receive Date: 20231017
  Receipt Date: 20231017
  Transmission Date: 20240110
  Serious: Yes (Hospitalization, Other)
  Sender: FDA-Public Use
  Company Number: US-STRIDES ARCOLAB LIMITED-2023SP015512

PATIENT
  Age: 50 Year
  Sex: Male

DRUGS (2)
  1. CABERGOLINE [Suspect]
     Active Substance: CABERGOLINE
     Indication: Prolactin-producing pituitary tumour
     Dosage: 0.5 MILLIGRAM DAILY
     Route: 065
  2. CABERGOLINE [Suspect]
     Active Substance: CABERGOLINE
     Dosage: UNK, RESTARTED
     Route: 065

REACTIONS (3)
  - Medication error [Unknown]
  - Drug resistance [Unknown]
  - Disease progression [Unknown]
